FAERS Safety Report 8851235 (Version 2)
Quarter: 2012Q4

REPORT INFORMATION
  Report Type: 
  Country: JP (occurrence: JP)
  Receive Date: 20121019
  Receipt Date: 20121029
  Transmission Date: 20130627
  Serious: Yes (Death)
  Sender: FDA-Public Use
  Company Number: JP-SANOFI-AVENTIS-2012SA074895

PATIENT
  Age: 83 Year
  Sex: Male
  Weight: 50 kg

DRUGS (4)
  1. TAXOTERE [Suspect]
     Indication: PROSTATE CANCER
     Route: 042
     Dates: start: 20121002, end: 20121002
  2. FAMOTIDINE [Concomitant]
     Route: 048
     Dates: start: 20120117
  3. NIKORANMART [Concomitant]
     Route: 048
  4. RINDERON [Concomitant]
     Route: 048
     Dates: start: 20120117

REACTIONS (3)
  - Febrile neutropenia [Fatal]
  - Pneumonia [Fatal]
  - Respiratory failure [Fatal]
